FAERS Safety Report 7219695-2 (Version None)
Quarter: 2011Q1

REPORT INFORMATION
  Report Type: 
  Country: None (occurrence: None)
  Receive Date: 20110111
  Receipt Date: 20110106
  Transmission Date: 20110831
  Serious: Yes (Other)
  Sender: FDA-Public Use
  Company Number: GB-BRISTOL-MYERS SQUIBB COMPANY-15478605

PATIENT
  Age: 57 Year
  Sex: Female

DRUGS (3)
  1. ERBITUX [Suspect]
     Dosage: DURATION:FOR 9 DAYS WEEKS UNTIL TREATMENT BREAK FOR ONE WEEK
  2. OXALIPLATIN [Suspect]
     Dosage: DURATION:FOR 9 DAYS WEEKS UNTIL TREATMENT BREAK FOR ONE WEEK
  3. CAPECITABINE [Suspect]
     Dosage: DURATION:FOR 9 DAYS WEEKS UNTIL TREATMENT BREAK FOR ONE WEEK

REACTIONS (2)
  - PALMAR-PLANTAR ERYTHRODYSAESTHESIA SYNDROME [None]
  - PLATELET COUNT DECREASED [None]
